FAERS Safety Report 7643378-8 (Version None)
Quarter: 2011Q3

REPORT INFORMATION
  Report Type: 
  Country: None (occurrence: None)
  Receive Date: 20110729
  Receipt Date: 20110725
  Transmission Date: 20111222
  Serious: Yes (Other)
  Sender: FDA-Public Use
  Company Number: US-BAYER-2011-054814

PATIENT
  Age: 23 Year
  Sex: Female
  Weight: 75.283 kg

DRUGS (1)
  1. MIRENA [Suspect]
     Indication: CONTRACEPTION
     Dosage: UNK
     Route: 015
     Dates: start: 20110526, end: 20110526

REACTIONS (2)
  - UTERINE PERFORATION [None]
  - PELVIC PAIN [None]
